FAERS Safety Report 4345252-1 (Version None)
Quarter: 2004Q2

REPORT INFORMATION
  Report Type: 
  Country: None (occurrence: None)
  Receive Date: 20040423
  Receipt Date: 20040415
  Transmission Date: 20050107
  Serious: Yes (Other)
  Sender: FDA-Public Use
  Company Number: PHBS2004US05119

PATIENT
  Age: 87 Year
  Sex: Male

DRUGS (7)
  1. IMATINIB [Suspect]
     Indication: CHRONIC MYELOID LEUKAEMIA
     Route: 048
     Dates: start: 20011101, end: 20020101
  2. IMATINIB [Suspect]
     Dosage: 300 MG/D
     Route: 048
     Dates: start: 20020315, end: 20030201
  3. IMATINIB [Suspect]
     Dosage: 300 MG/D
     Route: 048
     Dates: start: 20030401
  4. CYCLOPHOSPHAMIDE [Concomitant]
     Dates: start: 20020109
  5. ADRIAMYCIN [Concomitant]
     Dates: start: 20020109
  6. VINCRISTINE [Concomitant]
     Dates: start: 20020109
  7. PREDNISONE [Concomitant]
     Dates: start: 20020109

REACTIONS (5)
  - DIFFUSE LARGE B-CELL LYMPHOMA [None]
  - DYSPHAGIA [None]
  - NASAL CONGESTION [None]
  - NEUTROPENIA [None]
  - PANCYTOPENIA [None]
